FAERS Safety Report 7233619-3 (Version None)
Quarter: 2011Q1

REPORT INFORMATION
  Report Type: 
  Country: None (occurrence: None)
  Receive Date: 20110107
  Receipt Date: 20101222
  Transmission Date: 20110831
  Serious: Yes (Hospitalization)
  Sender: FDA-Public Use
  Company Number: 2010005577

PATIENT
  Age: 56 Year
  Sex: Female

DRUGS (1)
  1. TARCEVA [Suspect]
     Indication: PANCREATIC CARCINOMA
     Dosage: (100 MG, QD), ORAL
     Route: 048
     Dates: start: 20101211, end: 20101218

REACTIONS (5)
  - DIARRHOEA [None]
  - BLOOD BILIRUBIN INCREASED [None]
  - PAIN [None]
  - NAUSEA [None]
  - VOMITING [None]
